FAERS Safety Report 24239504 (Version 1)
Quarter: 2024Q3

REPORT INFORMATION
  Report Type: Spontaneous
  Country: US (occurrence: US)
  Receive Date: 20240822
  Receipt Date: 20240822
  Transmission Date: 20241016
  Serious: No
  Sender: AVADEL CNS PHARMA
  Company Number: US-AVADEL CNS PHARMACEUTICALS, LLC-2024AVA01087

PATIENT
  Sex: Female
  Weight: 55.782 kg

DRUGS (12)
  1. LUMRYZ [Suspect]
     Active Substance: SODIUM OXYBATE
     Indication: Narcolepsy
     Dosage: 6 G, ONCE NIGHTLY
     Route: 048
     Dates: start: 202402
  2. PROVIGIL [Concomitant]
     Active Substance: MODAFINIL
     Dosage: 400 MG, ONCE DAILY
  3. PROVIGIL [Concomitant]
     Active Substance: MODAFINIL
     Dosage: UNK, 100-200 MG ONCE DAILY
  4. STRATTERA [Concomitant]
     Active Substance: ATOMOXETINE HYDROCHLORIDE
     Dosage: 75 MG, ONCE DAILY (AROUND)
  5. VITAMIN D3 [Concomitant]
     Active Substance: CHOLECALCIFEROL
     Dosage: UNK, 5,000 (UNITS UNKNOWN) ONCE DAILY
  6. IRON [Concomitant]
     Active Substance: IRON
     Dosage: 65 MG, ONCE DAILY
  7. MAGNESIUM [Concomitant]
     Active Substance: MAGNESIUM
     Dosage: 500 MG, ONCE DAILY
  8. MAGNESIUM [Concomitant]
     Active Substance: MAGNESIUM
     Dosage: UNK, ONCE DAILY
  9. VITAMINS NOS [Concomitant]
     Active Substance: VITAMINS
     Dosage: UNK, ONCE DAILY
  10. BIOTIN GUMMY [Concomitant]
     Dosage: UNK, ONCE DAILY
  11. COLLAGEN [Concomitant]
     Active Substance: COLLAGEN
     Dosage: UNK, ONCE DAILY
  12. UNSPECIFIED INGREDIENT [Concomitant]
     Active Substance: UNSPECIFIED INGREDIENT
     Dosage: UNK

REACTIONS (5)
  - Flushing [Not Recovered/Not Resolved]
  - Palpitations [Not Recovered/Not Resolved]
  - Chest discomfort [Not Recovered/Not Resolved]
  - Peripheral swelling [Not Recovered/Not Resolved]
  - Weight decreased [Not Recovered/Not Resolved]

NARRATIVE: CASE EVENT DATE: 20240101
